FAERS Safety Report 22282045 (Version 1)
Quarter: 2023Q2

REPORT INFORMATION
  Report Type: Spontaneous
  Country: US (occurrence: US)
  Receive Date: 20230504
  Receipt Date: 20230504
  Transmission Date: 20230722
  Serious: Yes (Hospitalization, Other)
  Sender: FDA-Public Use
  Company Number: US-AMGEN-USASP2023072846

PATIENT
  Sex: Female

DRUGS (1)
  1. ENBREL [Suspect]
     Active Substance: ETANERCEPT
     Indication: Rheumatoid arthritis
     Dosage: 50 MILLIGRAM, QWK
     Route: 058
     Dates: start: 2021, end: 202303

REACTIONS (3)
  - Clostridium difficile infection [Not Recovered/Not Resolved]
  - Cerebrovascular accident [Unknown]
  - Product storage error [Unknown]

NARRATIVE: CASE EVENT DATE: 20230401
